FAERS Safety Report 9893904 (Version 2)
Quarter: 2014Q1

REPORT INFORMATION
  Report Type: Report from Study
  Country: CA (occurrence: CA)
  Receive Date: 20140213
  Receipt Date: 20140224
  Transmission Date: 20141002
  Serious: Yes (Other)
  Sender: FDA-Public Use
  Company Number: CA-JNJFOC-20140204525

PATIENT
  Age: 60 Year
  Sex: Male

DRUGS (1)
  1. REMICADE [Suspect]
     Indication: CROHN^S DISEASE
     Route: 042

REACTIONS (6)
  - Throat irritation [Unknown]
  - Hypertension [Unknown]
  - Feeling hot [Unknown]
  - Flushing [Unknown]
  - Back pain [Recovering/Resolving]
  - Infusion related reaction [Unknown]
